FAERS Safety Report 5644670-9 (Version None)
Quarter: 2008Q1

REPORT INFORMATION
  Report Type: 
  Country: None (occurrence: None)
  Receive Date: 20080229
  Receipt Date: 20070515
  Transmission Date: 20080703
  Serious: No
  Sender: FDA-Public Use
  Company Number: A0651467A

PATIENT
  Sex: Female

DRUGS (1)
  1. VALTREX [Suspect]
     Dosage: 500MG TWICE PER DAY
     Dates: start: 20070509

REACTIONS (1)
  - DRUG INEFFECTIVE [None]
